FAERS Safety Report 7200977-5 (Version None)
Quarter: 2010Q4

REPORT INFORMATION
  Report Type: 
  Country: None (occurrence: None)
  Receive Date: 20101228
  Receipt Date: 20101214
  Transmission Date: 20110411
  Serious: Yes (Other)
  Sender: FDA-Public Use
  Company Number: JP-MERCK-1010USA02804

PATIENT
  Age: 78 Year
  Sex: Female

DRUGS (2)
  1. FOSAMAX [Suspect]
     Dosage: DAILY DOSE UNKNOWN
     Route: 048
  2. CHOLECALCIFEROL AND VITAMIN A [Concomitant]
     Dosage: DAILY DOSE UNKNOWN
     Route: 048

REACTIONS (1)
  - FEMUR FRACTURE [None]
